FAERS Safety Report 10471965 (Version 2)
Quarter: 2014Q4

REPORT INFORMATION
  Report Type: Report from Study
  Country: PL (occurrence: PL)
  Receive Date: 20140924
  Receipt Date: 20141027
  Transmission Date: 20150528
  Serious: Yes (Death, Hospitalization, Other)
  Sender: FDA-Public Use
  Company Number: PL-ROCHE-1462696

PATIENT
  Age: 34 Year
  Sex: Female
  Weight: 61 kg

DRUGS (6)
  1. CLEXANE [Concomitant]
     Active Substance: ENOXAPARIN SODIUM
     Route: 058
     Dates: start: 201308
  2. AMPRIL [Concomitant]
     Route: 048
     Dates: start: 201210
  3. HEPATIL [Concomitant]
     Indication: HYPERTRANSAMINASAEMIA
     Route: 048
     Dates: start: 201210
  4. AVASTIN [Suspect]
     Active Substance: BEVACIZUMAB
     Indication: OVARIAN CANCER
     Route: 042
     Dates: start: 20120110, end: 20140910
  5. CARBOPLATIN. [Concomitant]
     Active Substance: CARBOPLATIN
     Indication: OVARIAN CANCER
  6. PACLITAXEL. [Concomitant]
     Active Substance: PACLITAXEL
     Indication: OVARIAN CANCER

REACTIONS (17)
  - Ovarian cancer metastatic [Recovered/Resolved]
  - Scar [Unknown]
  - Portal vein thrombosis [Not Recovered/Not Resolved]
  - Death [Fatal]
  - Mesenteric vein thrombosis [Not Recovered/Not Resolved]
  - Disseminated intravascular coagulation [Not Recovered/Not Resolved]
  - Mesenteric vein thrombosis [Not Recovered/Not Resolved]
  - Small intestinal obstruction [Recovered/Resolved]
  - Peritonitis [Unknown]
  - General physical health deterioration [Not Recovered/Not Resolved]
  - Acute abdomen [Recovered/Resolved]
  - Disease progression [Not Recovered/Not Resolved]
  - Neoplasm [Not Recovered/Not Resolved]
  - Haemorrhagic diathesis [Not Recovered/Not Resolved]
  - Skin necrosis [Unknown]
  - Ileal perforation [Recovered/Resolved]
  - Carbohydrate antigen 125 increased [Unknown]

NARRATIVE: CASE EVENT DATE: 20131024
